FAERS Safety Report 7613132-1 (Version None)
Quarter: 2011Q3

REPORT INFORMATION
  Report Type: 
  Country: None (occurrence: None)
  Receive Date: 20110713
  Receipt Date: 20110527
  Transmission Date: 20111222
  Serious: No
  Sender: FDA-Public Use
  Company Number: US-005477

PATIENT
  Sex: Male
  Weight: 92.5338 kg

DRUGS (6)
  1. VITAMIN A [Concomitant]
  2. LISINOPRIL [Concomitant]
  3. CLONAZEPAM [Concomitant]
  4. FISH OIL [Concomitant]
  5. DEGARELIX 240 MG [Suspect]
     Indication: PROSTATE CANCER
     Dosage: (SUBCUTANEOUS)
     Route: 058
     Dates: start: 20110525
  6. ASPIRIN [Concomitant]

REACTIONS (7)
  - INJECTION SITE WARMTH [None]
  - BURNING SENSATION [None]
  - INJECTION SITE ERYTHEMA [None]
  - INJECTION SITE RASH [None]
  - ERYTHEMA [None]
  - INJECTION SITE SWELLING [None]
  - INJECTION SITE PAIN [None]
